FAERS Safety Report 6231046-9 (Version None)
Quarter: 2009Q2

REPORT INFORMATION
  Report Type: 
  Country: None (occurrence: None)
  Receive Date: 20090616
  Receipt Date: 20090605
  Transmission Date: 20091009
  Serious: Yes (Other)
  Sender: FDA-Public Use
  Company Number: US-ROCHE-427205

PATIENT
  Sex: Female
  Weight: 59 kg

DRUGS (7)
  1. ACCUTANE [Suspect]
     Indication: ACNE
     Dosage: 20 WEEK COURSE.
     Route: 048
     Dates: start: 19960524, end: 19960614
  2. ACCUTANE [Suspect]
     Dosage: 20 WEEK COURSE.
     Route: 048
     Dates: start: 19960614
  3. ACCUTANE [Suspect]
     Route: 048
     Dates: start: 19970101, end: 19970101
  4. ACCUTANE [Suspect]
     Route: 048
     Dates: start: 20000601, end: 20001101
  5. ORTHO TRI-CYCLEN [Concomitant]
  6. LO/OVRAL [Concomitant]
  7. ALBUTEROL [Concomitant]

REACTIONS (26)
  - ANION GAP INCREASED [None]
  - ARTHROPATHY [None]
  - BLOOD UREA DECREASED [None]
  - BRONCHITIS [None]
  - CHONDROMALACIA [None]
  - COLITIS [None]
  - COLITIS ULCERATIVE [None]
  - CONJUNCTIVITIS [None]
  - DERMAL CYST [None]
  - FEELING HOT [None]
  - GASTROINTESTINAL DISORDER [None]
  - INFLAMMATORY BOWEL DISEASE [None]
  - INTESTINAL HAEMORRHAGE [None]
  - IRRITABLE BOWEL SYNDROME [None]
  - LIP DRY [None]
  - NASAL DRYNESS [None]
  - NASAL TURBINATE HYPERTROPHY [None]
  - OTITIS MEDIA [None]
  - PALPITATIONS [None]
  - PHARYNGITIS [None]
  - SINUSITIS [None]
  - SKIN DEPIGMENTATION [None]
  - SKIN LESION [None]
  - STRESS AT WORK [None]
  - TINNITUS [None]
  - VAGINAL HAEMORRHAGE [None]
